FAERS Safety Report 25937934 (Version 4)
Quarter: 2025Q4

REPORT INFORMATION
  Report Type: Spontaneous
  Country: JP (occurrence: JP)
  Receive Date: 20251018
  Receipt Date: 20251205
  Transmission Date: 20260118
  Serious: Yes (Hospitalization, Other)
  Sender: GALDERMA
  Company Number: JP-GALDERMA-JP2025018977

PATIENT

DRUGS (2)
  1. NEMOLIZUMAB [Suspect]
     Active Substance: NEMOLIZUMAB
     Indication: Neurodermatitis
     Dosage: 1 DOSAGE FORM
     Route: 058
     Dates: start: 20250815, end: 20250815
  2. NEMOLIZUMAB [Suspect]
     Active Substance: NEMOLIZUMAB
     Dosage: 1 DOSAGE FORM
     Route: 058
     Dates: start: 20250912, end: 20250912

REACTIONS (8)
  - Angioedema [Unknown]
  - Oedema peripheral [Unknown]
  - Arthralgia [Unknown]
  - White blood cell count increased [Unknown]
  - Eosinophil count increased [Unknown]
  - Joint swelling [Unknown]
  - Arthritis [Unknown]
  - Chemokine increased [Unknown]

NARRATIVE: CASE EVENT DATE: 20250909
